FAERS Safety Report 9711380 (Version 1)
Quarter: 2013Q4

REPORT INFORMATION
  Report Type: Spontaneous
  Country: US (occurrence: US)
  Receive Date: 20131126
  Receipt Date: 20131126
  Transmission Date: 20140711
  Serious: No
  Sender: FDA-Public Use
  Company Number: US-BRISTOL-MYERS SQUIBB COMPANY-19224633

PATIENT
  Age: 49 Year
  Sex: Female
  Weight: 99.77 kg

DRUGS (3)
  1. BYETTA [Suspect]
  2. GLUCOPHAGE [Suspect]
     Route: 048
  3. GLIPIZIDE [Suspect]
     Route: 048

REACTIONS (3)
  - Injection site erythema [Not Recovered/Not Resolved]
  - Weight decreased [Unknown]
  - Blood glucose increased [Recovering/Resolving]
